FAERS Safety Report 5136673-8 (Version None)
Quarter: 2006Q4

REPORT INFORMATION
  Report Type: 
  Country: None (occurrence: None)
  Receive Date: 20061027
  Receipt Date: 20061023
  Transmission Date: 20070319
  Serious: Yes (Hospitalization)
  Sender: FDA-Public Use
  Company Number: CM-MERCK-0610USA12594

PATIENT
  Age: 45 Year
  Sex: Female
  Weight: 80 kg

DRUGS (1)
  1. STROMECTOL [Suspect]
     Route: 048
     Dates: start: 20060519, end: 20060519

REACTIONS (3)
  - ARTHRALGIA [None]
  - ASTHENIA [None]
  - CONJUNCTIVAL HAEMORRHAGE [None]
